FAERS Safety Report 4848445-X (Version None)
Quarter: 2005Q4

REPORT INFORMATION
  Report Type: 
  Country: None (occurrence: None)
  Receive Date: 20051208
  Receipt Date: 20051205
  Transmission Date: 20060501
  Serious: Yes (Other)
  Sender: FDA-Public Use
  Company Number: 2005JP002306

PATIENT
  Age: 37 Year
  Sex: Male

DRUGS (1)
  1. CEFAZOLIN [Suspect]
     Route: 042
     Dates: start: 20040101

REACTIONS (1)
  - TOXIC EPIDERMAL NECROLYSIS [None]
